FAERS Safety Report 22003907 (Version 2)
Quarter: 2023Q1

REPORT INFORMATION
  Report Type: Spontaneous
  Country: US (occurrence: US)
  Receive Date: 20230217
  Receipt Date: 20230308
  Transmission Date: 20230417
  Serious: No
  Sender: FDA-Public Use
  Company Number: US-JNJFOC-20230223647

PATIENT
  Sex: Female

DRUGS (4)
  1. IMODIUM [Suspect]
     Active Substance: LOPERAMIDE HYDROCHLORIDE
     Indication: Diarrhoea
     Route: 065
  2. IBRANCE [Concomitant]
     Active Substance: PALBOCICLIB
     Indication: Breast cancer
     Route: 048
     Dates: start: 20230201
  3. FASLODEX [Concomitant]
     Active Substance: FULVESTRANT
     Indication: Product used for unknown indication
     Route: 048
     Dates: start: 20230201
  4. FASLODEX [Concomitant]
     Active Substance: FULVESTRANT
     Route: 048
     Dates: start: 20230201

REACTIONS (1)
  - Drug ineffective [Unknown]
